FAERS Safety Report 17938418 (Version 1)
Quarter: 2020Q2

REPORT INFORMATION
  Report Type: Spontaneous
  Country: US (occurrence: US)
  Receive Date: 20200625
  Receipt Date: 20200625
  Transmission Date: 20200714
  Serious: No
  Sender: FDA-Public Use
  Company Number: US-ELI_LILLY_AND_COMPANY-US202006008048

PATIENT
  Sex: Female

DRUGS (4)
  1. HUMALOG KWIKPEN [Suspect]
     Active Substance: INSULIN LISPRO
     Indication: DIABETES MELLITUS
     Dosage: UNK UNK, TID
     Route: 065
  2. HUMALOG KWIKPEN [Suspect]
     Active Substance: INSULIN LISPRO
     Dosage: UNK UNK, TID
     Route: 065
     Dates: start: 2000
  3. HUMALOG KWIKPEN [Suspect]
     Active Substance: INSULIN LISPRO
     Dosage: 30 U, OTHER (ONCE)
     Route: 065
  4. HUMALOG KWIKPEN [Suspect]
     Active Substance: INSULIN LISPRO
     Dosage: UNK UNK, TID
     Route: 065

REACTIONS (7)
  - Visual impairment [Unknown]
  - Pain [Unknown]
  - Back pain [Not Recovered/Not Resolved]
  - Blood glucose increased [Unknown]
  - Injection site pain [Unknown]
  - Product dose omission [Unknown]
  - Incorrect dose administered [Unknown]
